FAERS Safety Report 5878458-0 (Version None)
Quarter: 2008Q3

REPORT INFORMATION
  Report Type: 
  Country: None (occurrence: None)
  Receive Date: 20080911
  Receipt Date: 20070823
  Transmission Date: 20090109
  Serious: No
  Sender: FDA-Public Use
  Company Number: US-AMGEN-KDL240102

PATIENT
  Age: 52 Year
  Sex: Female

DRUGS (5)
  1. NEUPOGEN [Suspect]
     Indication: NEUTROPENIA
     Route: 058
     Dates: start: 20070822
  2. ADRIAMYCIN PFS [Concomitant]
  3. BLEOMYCIN SULFATE [Concomitant]
  4. VINBLASTINE SULFATE [Concomitant]
  5. DACARBAZINE [Concomitant]

REACTIONS (3)
  - HYPERSENSITIVITY [None]
  - RASH PRURITIC [None]
  - URTICARIA [None]
